FAERS Safety Report 6297235-2 (Version None)
Quarter: 2009Q3

REPORT INFORMATION
  Report Type: 
  Country: None (occurrence: None)
  Receive Date: 20090805
  Receipt Date: 20090724
  Transmission Date: 20100115
  Serious: Yes (Hospitalization)
  Sender: FDA-Public Use
  Company Number: US-JNJFOC-20090204921

PATIENT
  Sex: Female

DRUGS (1)
  1. REMICADE [Suspect]
     Indication: RHEUMATOID ARTHRITIS
     Route: 042

REACTIONS (7)
  - BLISTER [None]
  - DEEP VEIN THROMBOSIS [None]
  - DEHYDRATION [None]
  - HIP ARTHROPLASTY [None]
  - INFLUENZA [None]
  - OEDEMA PERIPHERAL [None]
  - SKIN GRAFT [None]
